FAERS Safety Report 15107267 (Version 1)
Quarter: 2018Q3

REPORT INFORMATION
  Report Type: Spontaneous
  Country: CN (occurrence: CN)
  Receive Date: 20180704
  Receipt Date: 20180704
  Transmission Date: 20181010
  Serious: Yes (Hospitalization)
  Sender: FDA-Public Use
  Company Number: CN-GLAXOSMITHKLINE-CN2018GSK106256

PATIENT
  Age: 50 Year
  Sex: Female
  Weight: 75 kg

DRUGS (2)
  1. VENTOLIN [Suspect]
     Active Substance: ALBUTEROL SULFATE
     Indication: ASTHMA
     Dosage: 1 PUFF(S), TID
     Route: 055
     Dates: end: 20180612
  2. BUDESONIDE. [Suspect]
     Active Substance: BUDESONIDE
     Indication: ASTHMA
     Dosage: 1 PUFF(S), TID
     Route: 055
     Dates: end: 20180612

REACTIONS (5)
  - Chronic obstructive pulmonary disease [Recovered/Resolved]
  - Mania [Recovered/Resolved]
  - Tremor [Recovered/Resolved]
  - Asthma [Recovered/Resolved]
  - Hypoaesthesia [Recovered/Resolved]
